FAERS Safety Report 24841193 (Version 1)
Quarter: 2025Q1

REPORT INFORMATION
  Report Type: Spontaneous
  Country: US (occurrence: US)
  Receive Date: 20250114
  Receipt Date: 20250114
  Transmission Date: 20250409
  Serious: Yes (Death, Hospitalization, Other)
  Sender: ALEXION PHARMACEUTICALS
  Company Number: US-ASTRAZENECA-202501USA008709US

PATIENT
  Age: 80 Year

DRUGS (10)
  1. FARXIGA [Suspect]
     Active Substance: DAPAGLIFLOZIN PROPANEDIOL
     Indication: Cardiac failure
  2. FARXIGA [Suspect]
     Active Substance: DAPAGLIFLOZIN PROPANEDIOL
     Indication: Product used for unknown indication
  3. ENTRESTO [Suspect]
     Active Substance: SACUBITRIL\VALSARTAN
     Indication: Cardiac failure
     Route: 065
  4. ENTRESTO [Suspect]
     Active Substance: SACUBITRIL\VALSARTAN
     Route: 065
  5. FUROSEMIDE [Suspect]
     Active Substance: FUROSEMIDE
     Route: 065
  6. FUROSEMIDE [Suspect]
     Active Substance: FUROSEMIDE
     Route: 065
  7. WARFARIN [Suspect]
     Active Substance: WARFARIN
     Route: 065
  8. WARFARIN [Suspect]
     Active Substance: WARFARIN
     Route: 065
  9. SEMAGLUTIDE [Suspect]
     Active Substance: SEMAGLUTIDE
     Route: 065
  10. SEMAGLUTIDE [Suspect]
     Active Substance: SEMAGLUTIDE
     Route: 065

REACTIONS (38)
  - Bronchial secretion retention [Unknown]
  - Cough [Unknown]
  - Pulseless electrical activity [Unknown]
  - Blood pressure abnormal [Fatal]
  - Nasopharyngitis [Unknown]
  - Subdural haematoma [Fatal]
  - Rhinorrhoea [Unknown]
  - Amnesia [Recovering/Resolving]
  - Asthenia [Unknown]
  - Blood glucose increased [Unknown]
  - Blood sodium decreased [Unknown]
  - Dizziness [Unknown]
  - Dysphonia [Unknown]
  - Gait disturbance [Unknown]
  - Craniocerebral injury [Fatal]
  - Headache [Unknown]
  - Hypokinesia [Unknown]
  - Laziness [Unknown]
  - Myalgia [Unknown]
  - Nausea [Unknown]
  - Productive cough [Unknown]
  - Pulmonary mass [Unknown]
  - Weight decreased [Unknown]
  - Bronchitis [Unknown]
  - Fall [Fatal]
  - Bronchial secretion retention [Unknown]
  - Pneumothorax [Unknown]
  - COVID-19 [Unknown]
  - Hypertension [Unknown]
  - Computerised tomogram abnormal [Unknown]
  - Electroencephalogram abnormal [Unknown]
  - Magnetic resonance imaging abnormal [Unknown]
  - Chest X-ray abnormal [Unknown]
  - Blood glucose abnormal [Unknown]
  - Wrong technique in product usage process [Unknown]
  - Product dose omission issue [Unknown]
  - Death [Fatal]
  - Craniocerebral injury [Fatal]
